FAERS Safety Report 21722788 (Version 1)
Quarter: 2022Q4

REPORT INFORMATION
  Report Type: Spontaneous
  Country: US (occurrence: None)
  Receive Date: 20221212
  Receipt Date: 20221212
  Transmission Date: 20230112
  Serious: Yes (Other)
  Sender: FDA-Public Use
  Company Number: None

PATIENT
  Age: 17 Year
  Sex: Female
  Weight: 34.6 kg

DRUGS (1)
  1. DARATUMUMAB [Suspect]
     Active Substance: DARATUMUMAB
     Indication: Donor specific antibody present
     Route: 042
     Dates: start: 20221027, end: 20221027

REACTIONS (11)
  - Headache [None]
  - Hypertension [None]
  - Tachycardia [None]
  - Infusion related reaction [None]
  - Vision blurred [None]
  - Ocular icterus [None]
  - Conjunctival oedema [None]
  - Conjunctival oedema [None]
  - Hypertransaminasaemia [None]
  - Acute myopia [None]
  - Ciliary body disorder [None]

NARRATIVE: CASE EVENT DATE: 20221027
